FAERS Safety Report 7928155-2 (Version None)
Quarter: 2011Q4

REPORT INFORMATION
  Report Type: 
  Country: None (occurrence: None)
  Receive Date: 20111118
  Receipt Date: 20111115
  Transmission Date: 20120403
  Serious: Yes (Life-Threatening)
  Sender: FDA-Public Use
  Company Number: TR-ELI_LILLY_AND_COMPANY-TR201111004802

PATIENT
  Sex: Female
  Weight: 58 kg

DRUGS (2)
  1. GEMZAR [Suspect]
     Indication: MESOTHELIOMA MALIGNANT
     Dosage: 1250 MG/M2, UNK
     Route: 042
  2. CISPLATIN [Concomitant]
     Indication: MESOTHELIOMA MALIGNANT
     Dosage: 70 MG/M2, UNKNOWN
     Route: 042
     Dates: start: 20101220

REACTIONS (2)
  - OFF LABEL USE [None]
  - HYPONATRAEMIA [None]
